FAERS Safety Report 8550361-7 (Version None)
Quarter: 2012Q3

REPORT INFORMATION
  Report Type: 
  Country: None (occurrence: None)
  Receive Date: 20120730
  Receipt Date: 20120723
  Transmission Date: 20120928
  Serious: Yes (Other)
  Sender: FDA-Public Use
  Company Number: US-009507513-1207USA009810

PATIENT

DRUGS (4)
  1. ZOCOR [Suspect]
     Route: 048
  2. LIPITOR [Suspect]
     Dosage: UNK
     Route: 048
  3. LIPITOR [Suspect]
     Dosage: 80 MG, QD
     Route: 048
  4. GLUCOVANCE [Concomitant]

REACTIONS (8)
  - BLOOD CHOLESTEROL INCREASED [None]
  - RENAL IMPAIRMENT [None]
  - MYALGIA [None]
  - DRUG INTOLERANCE [None]
  - LOW DENSITY LIPOPROTEIN INCREASED [None]
  - ASTHENIA [None]
  - MUSCULAR WEAKNESS [None]
  - VASCULAR INSUFFICIENCY [None]
